FAERS Safety Report 9956333 (Version 1)
Quarter: 2014Q1

REPORT INFORMATION
  Report Type: Spontaneous
  Country: US (occurrence: US)
  Receive Date: 20140304
  Receipt Date: 20140304
  Transmission Date: 20141002
  Serious: Yes (Disabling)
  Sender: FDA-Public Use
  Company Number: US-GE HEALTHCARE MEDICAL DIAGNOSTICS-OSCN-PR-0907S-0367

PATIENT
  Sex: Female

DRUGS (6)
  1. OMNISCAN [Suspect]
     Indication: HEPATIC CIRRHOSIS
     Route: 042
     Dates: start: 20041103, end: 20041103
  2. OMNISCAN [Suspect]
     Indication: CHOLANGITIS SCLEROSING
  3. MAGNEVIST [Suspect]
     Indication: RENAL FAILURE
     Route: 042
     Dates: start: 20030916, end: 20030916
  4. MAGNEVIST [Suspect]
     Indication: PERITONEAL DIALYSIS
     Route: 042
     Dates: start: 20040108, end: 20040108
  5. MAGNEVIST [Suspect]
     Indication: ABDOMINAL PAIN
  6. COUMADIN [Concomitant]
     Indication: PRODUCT USED FOR UNKNOWN INDICATION

REACTIONS (1)
  - Nephrogenic systemic fibrosis [Not Recovered/Not Resolved]
